FAERS Safety Report 6261689-8 (Version None)
Quarter: 2009Q3

REPORT INFORMATION
  Report Type: 
  Country: None (occurrence: None)
  Receive Date: 20090707
  Receipt Date: 20090707
  Transmission Date: 20100115
  Serious: Yes (Other)
  Sender: FDA-Public Use
  Company Number: None

PATIENT
  Age: 58 Year
  Sex: Male
  Weight: 120.2032 kg

DRUGS (1)
  1. LEVAQUIN [Suspect]
     Indication: SINUS DISORDER
     Dosage: 1 TABLET 24 HOURS
     Dates: start: 20090622, end: 20090701

REACTIONS (9)
  - ARTHRALGIA [None]
  - BACK PAIN [None]
  - CARDIAC FLUTTER [None]
  - DYSPNOEA [None]
  - FATIGUE [None]
  - HEART RATE DECREASED [None]
  - HEART RATE INCREASED [None]
  - INSOMNIA [None]
  - PAIN [None]
